FAERS Safety Report 17111275 (Version 5)
Quarter: 2022Q1

REPORT INFORMATION
  Report Type: Spontaneous
  Country: HU (occurrence: HU)
  Receive Date: 20191204
  Receipt Date: 20220325
  Transmission Date: 20220423
  Serious: Yes (Life-Threatening, Hospitalization, Other)
  Sender: FDA-Public Use
  Company Number: HU-PFIZER INC-2019282680

PATIENT
  Age: 66 Year
  Sex: Female

DRUGS (36)
  1. CLARITHROMYCIN [Suspect]
     Active Substance: CLARITHROMYCIN
     Indication: Product used for unknown indication
     Dosage: 500 MILLIGRAM, BID (2X500 MG,)
     Route: 048
     Dates: start: 20181120, end: 20181123
  2. CLARITHROMYCIN [Suspect]
     Active Substance: CLARITHROMYCIN
     Dosage: 1000 MILLIGRAM, TOTAL
     Route: 048
     Dates: start: 20181120, end: 20181123
  3. TEICOPLANIN [Suspect]
     Active Substance: TEICOPLANIN
     Indication: Product used for unknown indication
     Dosage: 400 MILLIGRAM, BID (2X400 MG,)
     Route: 042
     Dates: start: 20181222, end: 20181228
  4. TEICOPLANIN [Suspect]
     Active Substance: TEICOPLANIN
     Dosage: 800 MILLIGRAM (800 MG (2X400 MG) )
     Route: 042
     Dates: start: 20181222, end: 20181228
  5. TEICOPLANIN [Suspect]
     Active Substance: TEICOPLANIN
     Dosage: UNK
  6. ASPIRIN [Suspect]
     Active Substance: ASPIRIN
     Indication: Product used for unknown indication
     Dosage: 100 MILLIGRAM, QD (100 MG, DAILY , 4 TIMES IS TOTAL)
     Route: 048
     Dates: start: 20181109, end: 20181119
  7. ASPIRIN [Suspect]
     Active Substance: ASPIRIN
     Dosage: UNK
     Route: 065
  8. VANCOMYCIN [Suspect]
     Active Substance: VANCOMYCIN
     Indication: Product used for unknown indication
     Dosage: 500 MILLIGRAM, QD (500 MG, DAILY)
     Route: 042
     Dates: start: 20181203, end: 20181213
  9. CEFTRIAXONE [Suspect]
     Active Substance: CEFTRIAXONE
     Indication: Product used for unknown indication
     Dosage: 2 GRAM, QD
     Route: 042
     Dates: start: 20181203, end: 20181226
  10. METHYLPREDNISOLONE [Suspect]
     Active Substance: METHYLPREDNISOLONE
     Indication: Rash
     Dosage: 60 MILLIGRAM, QD ((FOR 3 DAYS) )
     Route: 048
  11. METHYLPREDNISOLONE [Suspect]
     Active Substance: METHYLPREDNISOLONE
     Dosage: 20 MILLIGRAM, QD (20 MG, QD(FOR 3 DAYS)  )
     Route: 048
     Dates: start: 20181114
  12. METHYLPREDNISOLONE [Suspect]
     Active Substance: METHYLPREDNISOLONE
     Dosage: UNK
     Dates: start: 20190121
  13. METRONIDAZOLE [Suspect]
     Active Substance: METRONIDAZOLE
     Indication: Product used for unknown indication
     Dosage: 500 MILLIGRAM, BID
     Route: 042
  14. METRONIDAZOLE [Suspect]
     Active Substance: METRONIDAZOLE
     Dosage: 1000 MILLIGRAM, QD (1000 MG, QD (2X 500 MG, DAILY) )
     Route: 042
     Dates: start: 20181205, end: 20181221
  15. IRON [Suspect]
     Active Substance: IRON
     Indication: Product used for unknown indication
     Dosage: UNK
  16. METHYLPREDNISOLONE SODIUM SUCCINATE [Suspect]
     Active Substance: METHYLPREDNISOLONE SODIUM SUCCINATE
     Indication: Rash
     Dosage: 80 MILLIGRAM, Q2D
     Route: 051
  17. METHYLPREDNISOLONE SODIUM SUCCINATE [Suspect]
     Active Substance: METHYLPREDNISOLONE SODIUM SUCCINATE
     Dosage: 125 MILLIGRAM
     Route: 051
     Dates: start: 20181207
  18. MEROPENEM [Suspect]
     Active Substance: MEROPENEM
     Indication: Product used for unknown indication
     Dosage: 500 MILLIGRAM, BID (2X500MG)
     Route: 065
     Dates: start: 20181225, end: 20181228
  19. MEROPENEM [Suspect]
     Active Substance: MEROPENEM
     Dosage: 1000 MILLIGRAM (1000 MG (2X500 MG)  )
     Route: 065
     Dates: start: 20181225, end: 20181228
  20. MOXIFLOXACIN [Suspect]
     Active Substance: MOXIFLOXACIN
     Indication: Product used for unknown indication
     Dosage: 400 MILLIGRAM, QD
     Route: 042
     Dates: start: 20181123, end: 20181127
  21. FOLIC ACID [Suspect]
     Active Substance: FOLIC ACID
     Indication: Product used for unknown indication
     Dosage: UNK
     Route: 065
  22. FOLIC ACID\IRON POLYMALTOSE [Suspect]
     Active Substance: FOLIC ACID\IRON POLYMALTOSE
     Indication: Iron deficiency anaemia
     Dosage: 2 DOSAGE FORM, QD (2X1 DF (TBL))
     Route: 048
     Dates: start: 20181220, end: 20190116
  23. PENTAGLOBIN [Suspect]
     Active Substance: HUMAN IMMUNOGLOBULIN G
     Indication: Product used for unknown indication
     Dosage: 500 MILLIGRAM/KILOGRAM
     Route: 042
     Dates: start: 20181204, end: 20181207
  24. PENTAGLOBIN [Suspect]
     Active Substance: HUMAN IMMUNOGLOBULIN G
     Dosage: 0.5 G/KG IN PERFUSOR
     Dates: start: 20190111, end: 20190114
  25. METHYLPREDNISOLONE [Suspect]
     Active Substance: METHYLPREDNISOLONE
     Indication: Rash
     Dosage: 80 MILLIGRAM (80 MG, UNK (80 MG, FOR 2 DAYS )  )
     Route: 051
     Dates: start: 20181120
  26. METHYLPREDNISOLONE [Suspect]
     Active Substance: METHYLPREDNISOLONE
     Dosage: 125 MILLIGRAM
  27. METHOTREXATE [Suspect]
     Active Substance: METHOTREXATE
     Indication: Product used for unknown indication
     Dosage: 10 MILLIGRAM
  28. METHOTREXATE [Suspect]
     Active Substance: METHOTREXATE
     Dosage: 7.5 MILLIGRAM, QD
     Route: 048
     Dates: start: 20190104, end: 20190607
  29. ANIDULAFUNGIN [Suspect]
     Active Substance: ANIDULAFUNGIN
     Indication: Febrile neutropenia
     Dosage: 200 MILLIGRAM, QD
     Route: 042
     Dates: start: 20190113, end: 20190121
  30. ANIDULAFUNGIN [Suspect]
     Active Substance: ANIDULAFUNGIN
     Dosage: 100 MILLIGRAM, QD
  31. COLISTIN [Suspect]
     Active Substance: COLISTIN
     Indication: Product used for unknown indication
     Dosage: 3X2 MIU THEN 2X2 MIU ADJUSTED TO RENAL FUNCTION
     Route: 042
     Dates: start: 20181228, end: 20190103
  32. COLISTIN [Suspect]
     Active Substance: COLISTIN
     Dosage: 2 MILLION INTERNATIONAL UNIT (3X2 MILLION IU)
     Route: 042
     Dates: start: 20190114, end: 20190208
  33. COLISTIN [Suspect]
     Active Substance: COLISTIN
     Dosage: 1 UNK
     Dates: start: 20190221, end: 20190225
  34. TIGECYCLINE [Suspect]
     Active Substance: TIGECYCLINE
     Indication: Product used for unknown indication
     Dosage: 100 MILLIGRAM, QD
     Route: 042
     Dates: start: 20190218, end: 20190225
  35. TIGECYCLINE [Suspect]
     Active Substance: TIGECYCLINE
     Dosage: 100 MILLIGRAM, QD
     Route: 042
     Dates: start: 20180128, end: 20190204
  36. MEROPENEM [Suspect]
     Active Substance: MEROPENEM
     Indication: Product used for unknown indication
     Dosage: 3 GRAM, QD
     Route: 042
     Dates: start: 20190111, end: 20190121

REACTIONS (15)
  - Acinetobacter infection [Recovered/Resolved]
  - Enterococcal infection [Recovered/Resolved]
  - Disease progression [Unknown]
  - Stenotrophomonas infection [Recovered/Resolved]
  - Skin ulcer [Recovered/Resolved]
  - Wound infection bacterial [Recovered/Resolved]
  - Morganella infection [Recovered/Resolved]
  - Neutropenia [Recovered/Resolved]
  - Wound haemorrhage [Recovered/Resolved]
  - Diarrhoea [Recovered/Resolved]
  - Haemodynamic instability [Recovered/Resolved]
  - Thrombocytopenia [Recovered/Resolved]
  - Anaemia [Recovered/Resolved]
  - Impaired healing [Recovered/Resolved]
  - Vomiting [Recovered/Resolved]

NARRATIVE: CASE EVENT DATE: 20181207
